FAERS Safety Report 17696149 (Version 1)
Quarter: 2020Q2

REPORT INFORMATION
  Report Type: Spontaneous
  Country: US (occurrence: US)
  Receive Date: 20200422
  Receipt Date: 20200422
  Transmission Date: 20200714
  Serious: Yes (Other)
  Sender: FDA-Public Use
  Company Number: US-NAPPMUNDI-USA-2019-0149115

PATIENT
  Sex: Male

DRUGS (2)
  1. OXYCONTIN [Suspect]
     Active Substance: OXYCODONE HYDROCHLORIDE
     Indication: PAIN
     Route: 048
  2. VICODIN [Suspect]
     Active Substance: ACETAMINOPHEN\HYDROCODONE BITARTRATE
     Indication: PAIN
     Route: 065

REACTIONS (13)
  - Hypophagia [Recovering/Resolving]
  - Formication [Recovering/Resolving]
  - Therapeutic product effect decreased [Unknown]
  - Myalgia [Recovering/Resolving]
  - Insomnia [Recovering/Resolving]
  - Drug withdrawal syndrome [Recovering/Resolving]
  - Antisocial behaviour [Unknown]
  - Anger [Unknown]
  - Discomfort [Recovering/Resolving]
  - Drug dependence [Recovering/Resolving]
  - Muscle spasms [Recovering/Resolving]
  - Dyskinesia [Recovering/Resolving]
  - Bone pain [Recovering/Resolving]
